FAERS Safety Report 4577851-6 (Version None)
Quarter: 2005Q1

REPORT INFORMATION
  Report Type: 
  Country: None (occurrence: None)
  Receive Date: 20050209
  Receipt Date: 20050128
  Transmission Date: 20050727
  Serious: Yes (Death, Disabling)
  Sender: FDA-Public Use
  Company Number: 2004EU002248

PATIENT
  Age: 47 Year
  Sex: Male

DRUGS (2)
  1. PROGRAF [Suspect]
     Indication: RENAL TRANSPLANT
     Dosage: 3.00 MG, UNKNOWN/D; ORAL
     Route: 048
     Dates: start: 20030101, end: 20041210
  2. CELLCEPT [Concomitant]

REACTIONS (3)
  - GRAFT LOSS [None]
  - METASTATIC NEOPLASM [None]
  - RENAL IMPAIRMENT [None]
